FAERS Safety Report 13321862 (Version 2)
Quarter: 2017Q1

REPORT INFORMATION
  Report Type: Spontaneous
  Country: US (occurrence: US)
  Receive Date: 20170309
  Receipt Date: 20170328
  Transmission Date: 20170428
  Serious: No
  Sender: FDA-Public Use
  Company Number: US-JNJFOC-20170308590

PATIENT
  Age: 77 Year
  Sex: Female
  Weight: 120.2 kg

DRUGS (1)
  1. INVOKAMET XR [Suspect]
     Active Substance: CANAGLIFLOZIN\METFORMIN HYDROCHLORIDE
     Indication: TYPE 2 DIABETES MELLITUS
     Route: 048
     Dates: start: 20170306

REACTIONS (2)
  - Inappropriate schedule of drug administration [Unknown]
  - Product packaging issue [Unknown]

NARRATIVE: CASE EVENT DATE: 20170306
